FAERS Safety Report 8891406 (Version 1)
Quarter: 2012Q4

REPORT INFORMATION
  Report Type: Spontaneous
  Country: US (occurrence: None)
  Receive Date: 20121105
  Receipt Date: 20121105
  Transmission Date: 20130627
  Serious: Yes (Hospitalization)
  Sender: FDA-Public Use
  Company Number: None

PATIENT
  Age: 89 Year
  Sex: Male
  Weight: 80.9 kg

DRUGS (1)
  1. HYDROCHLOROTHIAZIDE [Suspect]
     Indication: HYPERTENSION
     Dosage: Frequency: AM
     Route: 048
     Dates: start: 20080819, end: 20121029

REACTIONS (5)
  - Hypotension [None]
  - Hypovolaemia [None]
  - Vomiting [None]
  - Polyuria [None]
  - Diarrhoea [None]
